FAERS Safety Report 9095100 (Version 1)
Quarter: 2013Q1

REPORT INFORMATION
  Report Type: Spontaneous
  Country: US (occurrence: None)
  Receive Date: 20130214
  Receipt Date: 20130214
  Transmission Date: 20140127
  Serious: Yes (Other)
  Sender: FDA-Public Use
  Company Number: None

PATIENT
  Age: 78 Year
  Sex: Female
  Weight: 83.92 kg

DRUGS (1)
  1. ENTOCORT [Suspect]
     Indication: CROHN^S DISEASE
     Dosage: 3 CAPS LATER 1 CAP  WITH WATER
     Dates: start: 20110222, end: 20120607

REACTIONS (4)
  - Miliaria [None]
  - Pruritus [None]
  - Rash [None]
  - Pain [None]
